FAERS Safety Report 15375369 (Version 3)
Quarter: 2020Q3

REPORT INFORMATION
  Report Type: Spontaneous
  Country: US (occurrence: US)
  Receive Date: 20180912
  Receipt Date: 20200828
  Transmission Date: 20201102
  Serious: Yes (Other)
  Sender: FDA-Public Use
  Company Number: US-SA-2018SA254134

PATIENT

DRUGS (3)
  1. VITAMINS NOS [Concomitant]
     Active Substance: VITAMINS
     Dosage: UNK
  2. ACETAMINOPHEN. [Concomitant]
     Active Substance: ACETAMINOPHEN
     Dosage: UNK
  3. CLOMID [Suspect]
     Active Substance: CLOMIPHENE CITRATE
     Dosage: UNK

REACTIONS (3)
  - Product prescribing error [Unknown]
  - Exposure during pregnancy [Unknown]
  - Gestational diabetes [Unknown]
